FAERS Safety Report 13981225 (Version 1)
Quarter: 2017Q3

REPORT INFORMATION
  Report Type: Spontaneous
  Country: US (occurrence: US)
  Receive Date: 20170915
  Receipt Date: 20170915
  Transmission Date: 20171128
  Serious: Yes (Other)
  Sender: FDA-Public Use
  Company Number: None

PATIENT
  Age: 70 Year
  Sex: Male
  Weight: 90.45 kg

DRUGS (1)
  1. TESTOSTERONE 1% GEL [Suspect]
     Active Substance: TESTOSTERONE
     Indication: ANDROGEN DEFICIENCY
     Route: 061
     Dates: start: 20170612, end: 20170912

REACTIONS (4)
  - Application site irritation [None]
  - Product dosage form issue [None]
  - Drug level increased [None]
  - Application site warmth [None]

NARRATIVE: CASE EVENT DATE: 20170905
